FAERS Safety Report 7916827-5 (Version None)
Quarter: 2011Q4

REPORT INFORMATION
  Report Type: 
  Country: None (occurrence: None)
  Receive Date: 20111116
  Receipt Date: 20111107
  Transmission Date: 20120403
  Serious: Yes (Hospitalization)
  Sender: FDA-Public Use
  Company Number: FR-TEVA-308933ISR

PATIENT
  Age: 60 Year
  Sex: Male

DRUGS (1)
  1. DOXORUBICIN HCL [Suspect]
     Indication: METASTASES TO LIVER

REACTIONS (3)
  - PANCREATITIS ACUTE [None]
  - PANCREATIC NECROSIS [None]
  - PANCREATIC DISORDER [None]
